FAERS Safety Report 20821066 (Version 2)
Quarter: 2022Q3

REPORT INFORMATION
  Report Type: Spontaneous
  Country: US (occurrence: US)
  Receive Date: 20220512
  Receipt Date: 20220912
  Transmission Date: 20221027
  Serious: No
  Sender: FDA-Public Use
  Company Number: US-PFIZER INC-202200257989

PATIENT
  Age: 39 Year
  Sex: Female

DRUGS (2)
  1. XELJANZ [Suspect]
     Active Substance: TOFACITINIB CITRATE
     Dosage: 5 MG, 2X/DAY
     Dates: start: 20190101
  2. XELJANZ [Suspect]
     Active Substance: TOFACITINIB CITRATE
     Dosage: 5 MG, 2X/DAY
     Dates: start: 20210218

REACTIONS (6)
  - Anaemia [Unknown]
  - Vaginal haemorrhage [Unknown]
  - Product dose omission issue [Unknown]
  - Product dose omission in error [Unknown]
  - Intentional product misuse [Unknown]
  - COVID-19 [Unknown]
